FAERS Safety Report 5915244-7 (Version None)
Quarter: 2008Q4

REPORT INFORMATION
  Report Type: 
  Country: None (occurrence: None)
  Receive Date: 20081010
  Receipt Date: 20080929
  Transmission Date: 20090506
  Serious: No
  Sender: FDA-Public Use
  Company Number: US-BAYER-200826807NA

PATIENT
  Age: 44 Year
  Sex: Female
  Weight: 66 kg

DRUGS (1)
  1. MIRENA [Suspect]
     Indication: MENSTRUATION IRREGULAR
     Route: 015
     Dates: start: 20080527, end: 20080616

REACTIONS (6)
  - ABDOMINAL PAIN [None]
  - ENDOMETRIAL HYPERTROPHY [None]
  - HORMONE LEVEL ABNORMAL [None]
  - OVARIAN CYST [None]
  - POST PROCEDURAL HAEMORRHAGE [None]
  - WEIGHT INCREASED [None]
